FAERS Safety Report 10926906 (Version 1)
Quarter: 2015Q1

REPORT INFORMATION
  Report Type: Spontaneous
  Country: CH (occurrence: None)
  Receive Date: 20150316
  Receipt Date: 20150316
  Transmission Date: 20150721
  Serious: Yes (Hospitalization, Other)
  Sender: FDA-Public Use
  Company Number: ADR-2015-00507

PATIENT
  Sex: Male

DRUGS (2)
  1. BACLOFEN INTRATHECAL [Suspect]
     Active Substance: BACLOFEN
     Indication: DYSTONIA
     Dosage: SEE B5
  2. BACLOFEN INTRATHECAL [Suspect]
     Active Substance: BACLOFEN
     Indication: MUSCLE SPASTICITY
     Dosage: SEE B5

REACTIONS (8)
  - Drug withdrawal syndrome [None]
  - Hypertension [None]
  - Agitation [None]
  - Scoliosis [None]
  - Skin erosion [None]
  - Dystonia [None]
  - Tachycardia [None]
  - Pump reservoir issue [None]
